FAERS Safety Report 5272268-3 (Version None)
Quarter: 2007Q1

REPORT INFORMATION
  Report Type: 
  Country: None (occurrence: None)
  Receive Date: 20070322
  Receipt Date: 20070309
  Transmission Date: 20070707
  Serious: Yes (Other)
  Sender: FDA-Public Use
  Company Number: PHEH2007US02915

PATIENT
  Age: 84 Year
  Sex: Female

DRUGS (1)
  1. DIOVAN [Suspect]
     Dosage: 320 MG, QD
     Route: 048
     Dates: start: 20020101

REACTIONS (4)
  - ALOPECIA [None]
  - SPINAL COLUMN STENOSIS [None]
  - SPINAL FUSION SURGERY [None]
  - SPINAL LAMINECTOMY [None]
